FAERS Safety Report 14178655 (Version 1)
Quarter: 2017Q4

REPORT INFORMATION
  Report Type: Spontaneous
  Country: US (occurrence: US)
  Receive Date: 20171111
  Receipt Date: 20171111
  Transmission Date: 20180321
  Serious: Yes (Death, Hospitalization, Other)
  Sender: FDA-Public Use
  Company Number: US-CIPLA LTD.-2017US19432

PATIENT

DRUGS (34)
  1. TOPOTECAN [Suspect]
     Active Substance: TOPOTECAN HYDROCHLORIDE
     Dosage: UNK
     Route: 065
  2. CARBOPLATIN. [Suspect]
     Active Substance: CARBOPLATIN
     Indication: CHEMOTHERAPY
     Dosage: UNK
     Route: 065
  3. CELECOXIB. [Suspect]
     Active Substance: CELECOXIB
     Indication: NEUROBLASTOMA
     Dosage: UNK, 11 CYCLES
     Route: 065
  4. CYCLOPHOSPHAMIDE. [Suspect]
     Active Substance: CYCLOPHOSPHAMIDE
     Dosage: HIGH DOSE, AS CYCLE 6
     Route: 065
  5. DECITABINE. [Suspect]
     Active Substance: DECITABINE
     Indication: NEUROBLASTOMA
     Dosage: 20 MG/M2, 5 DAYS CYLCE IN A 28-DAY CYCLE
     Route: 065
  6. LENALIDOMIDE [Suspect]
     Active Substance: LENALIDOMIDE
     Indication: NEUROBLASTOMA
     Dosage: UNK, 11 CYCLES
     Route: 065
  7. TOPOTECAN [Suspect]
     Active Substance: TOPOTECAN HYDROCHLORIDE
     Dosage: ONE CYCLE OF INTERMEDIATE DOSE
  8. VINCRISTINE [Suspect]
     Active Substance: VINCRISTINE
     Dosage: HIGH DOSE, THIRD CYCLE
     Route: 065
  9. DECITABINE. [Suspect]
     Active Substance: DECITABINE
     Dosage: 10 MG/M2, QD, 5 DAY CYCLE
     Route: 065
  10. TEMOZOLOMIDE. [Suspect]
     Active Substance: TEMOZOLOMIDE
     Indication: NEUROBLASTOMA
     Dosage: UNK, 8 CYCLES
     Route: 065
  11. TOPOTECAN [Suspect]
     Active Substance: TOPOTECAN HYDROCHLORIDE
     Indication: NEUROBLASTOMA
     Dosage: UNK, AS CYCLE 6
     Route: 065
  12. TOPOTECAN [Suspect]
     Active Substance: TOPOTECAN HYDROCHLORIDE
     Dosage: HIGH DOSE, THIRD CYCLE
     Route: 065
  13. IRINOTECAN [Suspect]
     Active Substance: IRINOTECAN
     Dosage: ONE CYCLE OF SINGLE AGENT
     Route: 065
  14. CYCLOPHOSPHAMIDE. [Suspect]
     Active Substance: CYCLOPHOSPHAMIDE
     Dosage: (CUMULATIVE DOSES OF 34.4 G/M2)
     Route: 065
  15. VINCRISTINE [Suspect]
     Active Substance: VINCRISTINE
     Dosage: UNK, AS CYCLE 6
     Route: 065
  16. IFOSFAMIDE. [Suspect]
     Active Substance: IFOSFAMIDE
     Indication: NEUROBLASTOMA
     Dosage: UNK
     Route: 065
  17. IRINOTECAN [Suspect]
     Active Substance: IRINOTECAN
     Indication: NEUROBLASTOMA
     Dosage: UNK, 8 CYCLES
     Route: 065
  18. CYCLOPHOSPHAMIDE. [Suspect]
     Active Substance: CYCLOPHOSPHAMIDE
     Indication: NEUROBLASTOMA
     Dosage: INDUCTION THERAPY, 5 CYCLES (CUMULATIVE DOSE 12.6 G/M2)
     Route: 065
  19. CYCLOPHOSPHAMIDE. [Suspect]
     Active Substance: CYCLOPHOSPHAMIDE
     Dosage: HIGH DOSE, SECOND CYCLE
     Route: 065
  20. DOXORUBICIN [Suspect]
     Active Substance: DOXORUBICIN
     Indication: NEUROBLASTOMA
     Dosage: INDUCTION THERAPY, 5 CYCLES (CUMULATIVE DOSE 225 MG/M2)
     Route: 065
  21. 3F8 [Suspect]
     Active Substance: INVESTIGATIONAL PRODUCT
     Indication: NEUROBLASTOMA
     Dosage: NINE MONTHLY CYCLES
     Route: 065
  22. ETOPOSIDE. [Suspect]
     Active Substance: ETOPOSIDE
     Indication: NEUROBLASTOMA
     Dosage: 50 MG/M2/D
     Route: 048
  23. CISPLATIN. [Suspect]
     Active Substance: CISPLATIN
     Indication: NEUROBLASTOMA
     Dosage: UNK, INDUCTION THERAPY, 5 CYCLES
     Route: 065
  24. VINCRISTINE [Suspect]
     Active Substance: VINCRISTINE
     Dosage: ONE CYCLE OF INTERMEDIATE DOSE
     Route: 065
  25. MELPHALAN. [Suspect]
     Active Substance: MELPHALAN
     Indication: NEUROBLASTOMA
     Dosage: UNK, AS CYCLE 6
     Route: 065
  26. CIS-RETINOIC ACID [Suspect]
     Active Substance: UNSPECIFIED INGREDIENT
     Indication: NEUROBLASTOMA
     Dosage: NINE MONTHLY CYCLES
     Route: 065
  27. ETOPOSIDE. [Suspect]
     Active Substance: ETOPOSIDE
     Indication: CHEMOTHERAPY
     Dosage: INDUCTION THERAPY, 5 CYCLES (CUMULATIVE DOSE 1.2 G/M2)
     Route: 065
  28. ETOPOSIDE. [Suspect]
     Active Substance: ETOPOSIDE
     Indication: PALLIATIVE CARE
     Dosage: (CUMULATIVE DOSES OF 2.55 G/M2)
     Route: 065
  29. VORINOSTAT [Suspect]
     Active Substance: VORINOSTAT
     Indication: NEUROBLASTOMA
     Dosage: 100 MG/M2, QD FOR 14 DAY CYCLE IN A 28-DAY CYCLE
     Route: 065
  30. TOPOTECAN [Suspect]
     Active Substance: TOPOTECAN HYDROCHLORIDE
     Dosage: ONE CYCLE, INTERMEDIATE DOSE
     Route: 065
  31. CARBOPLATIN. [Suspect]
     Active Substance: CARBOPLATIN
     Indication: NEUROBLASTOMA
  32. CYCLOPHOSPHAMIDE. [Suspect]
     Active Substance: CYCLOPHOSPHAMIDE
     Dosage: HIG DOSE, THIRD CYCLE
     Route: 065
  33. DOXORUBICIN [Suspect]
     Active Substance: DOXORUBICIN
     Dosage: (CUMULATIVE DOSES OF 225 MG/M2)
     Route: 065
  34. VINCRISTINE [Suspect]
     Active Substance: VINCRISTINE
     Indication: NEUROBLASTOMA
     Dosage: UNK, 5 CYCLES
     Route: 065

REACTIONS (6)
  - Death [Fatal]
  - Febrile neutropenia [Unknown]
  - Disease progression [Unknown]
  - Metastasis [Unknown]
  - Myelodysplastic syndrome [Unknown]
  - Bone marrow failure [Unknown]
